FAERS Safety Report 6694256-2 (Version None)
Quarter: 2010Q2

REPORT INFORMATION
  Report Type: 
  Country: None (occurrence: None)
  Receive Date: 20100421
  Receipt Date: 20100412
  Transmission Date: 20101027
  Serious: Yes (Other)
  Sender: FDA-Public Use
  Company Number: 10-000309

PATIENT
  Age: 68 Year
  Sex: Female

DRUGS (4)
  1. ESTRACE [Suspect]
     Indication: ATROPHIC VULVOVAGINITIS
     Dosage: ONCE WEEKLY, VAGINAL
     Route: 067
  2. ASPIRIN [Concomitant]
  3. CRESTOR [Concomitant]
  4. SYNTHROID [Concomitant]

REACTIONS (4)
  - BACK PAIN [None]
  - FOREIGN BODY [None]
  - PELVIC MASS [None]
  - TRANSIENT ISCHAEMIC ATTACK [None]
